FAERS Safety Report 7550030-6 (Version None)
Quarter: 2011Q2

REPORT INFORMATION
  Report Type: 
  Country: None (occurrence: None)
  Receive Date: 20110615
  Receipt Date: 20110216
  Transmission Date: 20111010
  Serious: Yes (Death, Hospitalization, Other)
  Sender: FDA-Public Use
  Company Number: DE-ACTELION-A-US2011-44826

PATIENT

DRUGS (3)
  1. TRACLEER [Concomitant]
     Indication: PULMONARY ARTERIAL HYPERTENSION
  2. VENTAVIS [Suspect]
     Indication: PULMONARY HYPERTENSION
     Dosage: 5 MCG
     Route: 055
     Dates: start: 20050801
  3. SILDENAFIL CITRATE [Concomitant]
     Indication: PULMONARY ARTERIAL HYPERTENSION

REACTIONS (10)
  - PERITONITIS BACTERIAL [None]
  - TACHYCARDIA [None]
  - CARDIAC DISORDER [None]
  - CARDIOVASCULAR INSUFFICIENCY [None]
  - ASCITES [None]
  - SEPSIS [None]
  - ABDOMINAL PAIN [None]
  - HYPOTENSION [None]
  - CARDIAC FAILURE [None]
  - BACTERIAL SEPSIS [None]
